FAERS Safety Report 23532140 (Version 2)
Quarter: 2024Q1

REPORT INFORMATION
  Report Type: Spontaneous
  Country: CO (occurrence: CO)
  Receive Date: 20240216
  Receipt Date: 20240306
  Transmission Date: 20240409
  Serious: Yes (Hospitalization, Other)
  Sender: FDA-Public Use
  Company Number: CO-PFIZER INC-PV202400020211

PATIENT
  Age: 7 Year
  Sex: Female

DRUGS (4)
  1. GENOTROPIN [Suspect]
     Active Substance: SOMATROPIN
     Dosage: 0.8 MG, DAILY
     Route: 058
     Dates: start: 20220413, end: 20230417
  2. FERROUS SULFATE [Concomitant]
     Active Substance: FERROUS SULFATE
     Dosage: UNK
  3. ASCORBIC ACID [Concomitant]
     Active Substance: ASCORBIC ACID
     Dosage: UNK
  4. ALBENDAZOLE [Concomitant]
     Active Substance: ALBENDAZOLE
     Dosage: UNK

REACTIONS (5)
  - Pyrexia [Unknown]
  - Fluid retention [Unknown]
  - Platelet count decreased [Unknown]
  - Hypophosphataemic osteomalacia [Unknown]
  - Renal disorder [Unknown]

NARRATIVE: CASE EVENT DATE: 20230401
